FAERS Safety Report 26092102 (Version 1)
Quarter: 2025Q4

REPORT INFORMATION
  Report Type: Spontaneous
  Country: MW (occurrence: MW)
  Receive Date: 20251126
  Receipt Date: 20251126
  Transmission Date: 20260117
  Serious: Yes (Death, Other)
  Sender: SANOFI AVENTIS
  Company Number: MW-SA-2025SA351003

PATIENT
  Age: 19 Year
  Sex: Male
  Weight: 40 kg

DRUGS (1)
  1. FEXINIDAZOLE [Suspect]
     Active Substance: FEXINIDAZOLE
     Indication: African trypanosomiasis
     Dosage: 1800 MG X 4/7 AND 1200 MG X 6/7
     Route: 048
     Dates: start: 20251023, end: 20251111

REACTIONS (5)
  - Death [Fatal]
  - Seizure [Unknown]
  - Sepsis [Unknown]
  - Pyrexia [Unknown]
  - Anaemia [Unknown]

NARRATIVE: CASE EVENT DATE: 20250101
